FAERS Safety Report 8949671 (Version 2)
Quarter: 2013Q1

REPORT INFORMATION
  Report Type: Spontaneous
  Country: US (occurrence: US)
  Receive Date: 20121206
  Receipt Date: 20130114
  Transmission Date: 20140127
  Serious: Yes (Other)
  Sender: FDA-Public Use
  Company Number: US-PFIZER INC-2012306879

PATIENT
  Age: 62 Year
  Sex: Female
  Weight: 78.01 kg

DRUGS (6)
  1. LYRICA [Suspect]
     Indication: NEURALGIA
     Dosage: 200 MG, 2X/DAY
     Route: 048
     Dates: start: 20120221, end: 201209
  2. MOBIC [Concomitant]
     Dosage: 7.5 MG, 1X/DAY
     Route: 048
  3. HYDROCHLOROTHIAZIDE [Concomitant]
     Dosage: 50 MG, 1X/DAY
     Route: 048
  4. BYSTOLIC [Concomitant]
     Dosage: 5 MG, 1X/DAY
     Route: 048
  5. PRILOSEC [Concomitant]
     Dosage: 20 MG, 1X/DAY
  6. BENADRYL [Concomitant]
     Dosage: 25 MG, UNK

REACTIONS (2)
  - Polycythaemia vera [Unknown]
  - Hypoxia [Unknown]
